FAERS Safety Report 24714289 (Version 1)
Quarter: 2024Q4

REPORT INFORMATION
  Report Type: Spontaneous
  Country: IT (occurrence: IT)
  Receive Date: 20241209
  Receipt Date: 20241209
  Transmission Date: 20250114
  Serious: Yes (Other)
  Sender: AMGEN
  Company Number: IT-AMGEN-ITASP2024240403

PATIENT

DRUGS (3)
  1. ADALIMUMAB [Suspect]
     Active Substance: ADALIMUMAB
     Indication: Crohn^s disease
     Dosage: UNK
     Route: 065
  2. UPADACITINIB [Concomitant]
     Active Substance: UPADACITINIB
     Indication: Crohn^s disease
     Dosage: 45 MILLIGRAM, QD, FOR 12 WEEKS (INDUCTION)
     Route: 065
  3. UPADACITINIB [Concomitant]
     Active Substance: UPADACITINIB
     Dosage: 30 MILLIGRAM, QD, FOR ANOTHER 12 WEEKS (MAINTENANCE)
     Route: 065

REACTIONS (14)
  - Cholestasis [Unknown]
  - Acute kidney injury [Unknown]
  - Liver abscess [Unknown]
  - Bordetella infection [Unknown]
  - Intestinal perforation [Unknown]
  - Hepatitis [Unknown]
  - Treatment failure [Unknown]
  - Folliculitis [Unknown]
  - Arthralgia [Unknown]
  - Arthritis [Unknown]
  - Pharyngitis bacterial [Unknown]
  - Anaemia [Unknown]
  - Blood creatine phosphokinase increased [Unknown]
  - Herpes zoster [Unknown]
